FAERS Safety Report 9293052 (Version 1)
Quarter: 2013Q2

REPORT INFORMATION
  Report Type: Spontaneous
  Country: US (occurrence: None)
  Receive Date: 20130515
  Receipt Date: 20130515
  Transmission Date: 20140414
  Serious: Yes (Disabling)
  Sender: FDA-Public Use
  Company Number: None

PATIENT
  Age: 47 Year
  Sex: Female

DRUGS (4)
  1. REBIF [Suspect]
     Indication: MULTIPLE SCLEROSIS
     Dosage: 02/08/2011-12/31/2013
     Dates: start: 20110208
  2. CITALOPRAM [Concomitant]
  3. LITHIUM [Concomitant]
  4. ZYPREXA [Concomitant]

REACTIONS (1)
  - Injection site reaction [None]
